FAERS Safety Report 4940293-5 (Version None)
Quarter: 2006Q1

REPORT INFORMATION
  Report Type: 
  Country: None (occurrence: None)
  Receive Date: 20060310
  Receipt Date: 20050527
  Transmission Date: 20060701
  Serious: Yes (Hospitalization, Disabling)
  Sender: FDA-Public Use
  Company Number: US-MERCK-0505USA03396

PATIENT
  Age: 46 Year
  Sex: Male
  Weight: 81 kg

DRUGS (3)
  1. VIOXX [Suspect]
     Indication: JOINT SWELLING
     Route: 048
     Dates: start: 20030508, end: 20030526
  2. VIOXX [Suspect]
     Route: 048
     Dates: start: 20030508, end: 20030526
  3. IBUPROFEN [Concomitant]
     Route: 065

REACTIONS (18)
  - AMPUTATION [None]
  - ANGIOPATHY [None]
  - ARTERIAL DISORDER [None]
  - BACK PAIN [None]
  - BACTERIAL SEPSIS [None]
  - CARDIAC FAILURE CONGESTIVE [None]
  - CHEST PAIN [None]
  - CYST [None]
  - DIALYSIS [None]
  - DYSPNOEA [None]
  - EMOTIONAL DISTRESS [None]
  - LEG AMPUTATION [None]
  - MYOCARDIAL INFARCTION [None]
  - PERIPHERAL ISCHAEMIA [None]
  - PERIPHERAL VASCULAR DISORDER [None]
  - RENAL FAILURE CHRONIC [None]
  - SKIN ULCER [None]
  - THROMBOSIS [None]
